FAERS Safety Report 14998749 (Version 1)
Quarter: 2018Q2

REPORT INFORMATION
  Report Type: Spontaneous
  Country: FR (occurrence: FR)
  Receive Date: 20180612
  Receipt Date: 20180612
  Transmission Date: 20180711
  Serious: Yes (Hospitalization)
  Sender: FDA-Public Use
  Company Number: FR-TEVA-2018-FR-904114

PATIENT
  Age: 51 Year
  Sex: Male

DRUGS (3)
  1. OFLOXACIN. [Concomitant]
     Active Substance: OFLOXACIN
     Indication: OSTEITIS
     Route: 065
  2. ATORVASTATIN [Suspect]
     Active Substance: ATORVASTATIN
     Dosage: 80 MILLIGRAM DAILY;
     Route: 065
  3. FUSIDIC ACID [Interacting]
     Active Substance: FUSIDIC ACID
     Indication: OSTEITIS
     Dosage: 1500 MILLIGRAM DAILY;
     Route: 065

REACTIONS (2)
  - Rhabdomyolysis [Recovered/Resolved with Sequelae]
  - Drug interaction [Unknown]
